FAERS Safety Report 5702446-8 (Version None)
Quarter: 2008Q2

REPORT INFORMATION
  Report Type: 
  Country: None (occurrence: None)
  Receive Date: 20080411
  Receipt Date: 20080208
  Transmission Date: 20081010
  Serious: Yes (Other)
  Sender: FDA-Public Use
  Company Number: US-ASTRAZENECA-2008UW02793

PATIENT
  Sex: Female

DRUGS (1)
  1. ZESTORETIC [Suspect]
     Route: 048
     Dates: start: 20070101

REACTIONS (2)
  - ANGIOEDEMA [None]
  - HEADACHE [None]
